FAERS Safety Report 7087981-5 (Version None)
Quarter: 2010Q4

REPORT INFORMATION
  Report Type: 
  Country: None (occurrence: None)
  Receive Date: 20101108
  Receipt Date: 20101029
  Transmission Date: 20110411
  Serious: Yes (Hospitalization)
  Sender: FDA-Public Use
  Company Number: US-ASTRAZENECA-2010SE51275

PATIENT
  Age: 66 Year
  Sex: Male

DRUGS (5)
  1. ROSUVASTATIN [Suspect]
     Route: 048
  2. SILDENAFIL CITRATE [Interacting]
     Dosage: INFREQUENTLY BEFORE ROSUVASTATIN WAS STARTED
  3. SILDENAFIL CITRATE [Interacting]
     Dosage: ONE SINGLE DOSE
  4. LOSARTAN [Concomitant]
     Indication: HYPERTENSION
  5. METFORMIN HCL [Concomitant]
     Indication: DIABETES MELLITUS

REACTIONS (6)
  - BLOOD GLUCOSE INCREASED [None]
  - BODY TEMPERATURE INCREASED [None]
  - DRUG INTERACTION [None]
  - ERECTION INCREASED [None]
  - RHABDOMYOLYSIS [None]
  - SPONTANEOUS PENILE ERECTION [None]
